FAERS Safety Report 6747433-6 (Version None)
Quarter: 2010Q2

REPORT INFORMATION
  Report Type: 
  Country: None (occurrence: None)
  Receive Date: 20100526
  Receipt Date: 20100512
  Transmission Date: 20101027
  Serious: Yes (Other)
  Sender: FDA-Public Use
  Company Number: ZA-1181916

PATIENT
  Age: 64 Year
  Sex: Female

DRUGS (1)
  1. CIPROBAY HC (CIPRO HC) EAR DROPS EAR DROPS, SUSPENSION [Suspect]
     Indication: EAR PAIN
     Dosage: AURICULAR (OTIC)
     Route: 001

REACTIONS (1)
  - FOREIGN BODY [None]
